FAERS Safety Report 7039441-5 (Version None)
Quarter: 2010Q4

REPORT INFORMATION
  Report Type: 
  Country: None (occurrence: None)
  Receive Date: 20101012
  Receipt Date: 20101003
  Transmission Date: 20110411
  Serious: Yes (Hospitalization, Disabling, Other)
  Sender: FDA-Public Use
  Company Number: IR-WYE-H18009710

PATIENT
  Age: 25 Year
  Sex: Female

DRUGS (3)
  1. RAPAMUNE [Suspect]
     Indication: RENAL TRANSPLANT
     Dosage: 2 MG
     Route: 048
     Dates: start: 20071001, end: 20100101
  2. PREDNISOLONE [Concomitant]
     Dates: start: 20040801
  3. CELL CEPT [Concomitant]
     Indication: IMMUNOSUPPRESSION
     Dates: start: 20040801

REACTIONS (2)
  - KIDNEY ENLARGEMENT [None]
  - LYMPHOCYTIC INFILTRATION [None]
